FAERS Safety Report 9511377 (Version 1)
Quarter: 2013Q3

REPORT INFORMATION
  Report Type: Spontaneous
  Country: US (occurrence: None)
  Receive Date: 20130906
  Receipt Date: 20130906
  Transmission Date: 20140515
  Serious: Yes (Other)
  Sender: FDA-Public Use
  Company Number: SYM-2013-10279

PATIENT
  Age: 69 Year
  Sex: Male

DRUGS (22)
  1. ACYCLOVIR [Suspect]
     Indication: HERPES ZOSTER
     Route: 048
     Dates: start: 2013, end: 2013
  2. FLUTICASONE AND SALMETEROL [Suspect]
     Indication: EMPHYSEMA
     Dosage: 1 PUFF TWICE PER DAY., INHALATION
  3. METFORMIN HYDROCHLORIDE(METFORMIN HYDROCHLORIDE)(METFORMIN HYDROCHLORIDE) [Concomitant]
  4. BLOOD PRESSURE MEDICATION(ANTIHYPERTENSIVES)(NULL) [Concomitant]
  5. FRUSEMIDE(FUROSEMIDE)(FUROSEMIDE) [Concomitant]
  6. TIOTROPIUM(TIOTROPIUM)(TIOTROPIUM) [Concomitant]
  7. PROCATEROL HYDROCHLORIDE(PROCATEROL HYDROCHLORIDE)(PROCATEROL HYDROCHLORIDE) [Concomitant]
  8. FISH OIL(FISH OIL)(FISH OIL) [Concomitant]
  9. METOPROLOL TARTRATE(METOPROLOL TARTRATE)(METOPROLOL TARTRATE) [Concomitant]
  10. COMBIVENT(SALBUTAMOL W/IPRATROPIUM)(SALBUTAMOL, IPRATROPIUM) [Concomitant]
  11. GEMFIBROZIL(GEMFIBROZIL)(GEMFIBROZIL) [Concomitant]
  12. FAMOTIDINE(FAMOTIDINE)(FAMOTIDINE) [Concomitant]
  13. POTASSIUM SALT(POTASSIUM)(POTASSIUM) [Concomitant]
  14. THEOPHYLLINE(THEOPHYLLINE)(THEOPHYLLINE) [Concomitant]
  15. LANTUS(INSULIN GLARGINE)(INSULIN GLARGINE) [Concomitant]
  16. VICODIN(VICODIN)(PARACETAMOL, HYDROCODONE BITARTRATE) [Concomitant]
  17. VITAMIN E(TOCOPHEROL)(TOCOPHEROL) [Concomitant]
  18. VITAMIN D(ERGOCALCIFEROL)(ERGOCALCIFEROL) [Concomitant]
  19. SIMVASTATIN(SIMVASTATIN)(SIMVASTATIN) [Concomitant]
  20. CHROMIUM SALT(CHROMIUM) (CHROMIUM) [Concomitant]
  21. ALBUTEROL(SALBUTAMOL)(SALBUTAMOL) [Concomitant]
  22. ASPIRIN(ACETYLSALICYLIC ACID)(ACETYLSALICYLIC ACID) [Concomitant]

REACTIONS (7)
  - Gout [None]
  - Herpes zoster [None]
  - Confusional state [None]
  - Drug dose omission [None]
  - Constipation [None]
  - Extra dose administered [None]
  - Shoulder operation [None]
